FAERS Safety Report 6767805-3 (Version None)
Quarter: 2010Q2

REPORT INFORMATION
  Report Type: 
  Country: None (occurrence: None)
  Receive Date: 20100614
  Receipt Date: 20100602
  Transmission Date: 20101027
  Serious: Yes (Other)
  Sender: FDA-Public Use
  Company Number: PHHY2010NO35604

PATIENT
  Sex: Female

DRUGS (4)
  1. RITALIN [Suspect]
     Indication: ATTENTION DEFICIT/HYPERACTIVITY DISORDER
     Dosage: 80-120 MG DAILY
     Route: 048
  2. RITALIN [Suspect]
     Dosage: 20 MG
     Route: 048
     Dates: start: 20100510
  3. IMIGRAN                                 /NOR/ [Suspect]
     Indication: MIGRAINE
     Dosage: USED SEVERAL YEARS. ONE DOSE THE CURRENT DAY AT 13.00
     Route: 058
     Dates: start: 20100510, end: 20100510
  4. SELO-ZOK [Suspect]
     Indication: MIGRAINE PROPHYLAXIS
     Route: 048

REACTIONS (4)
  - MIGRAINE [None]
  - PAIN IN JAW [None]
  - TREATMENT NONCOMPLIANCE [None]
  - TRISMUS [None]
